FAERS Safety Report 4963314-2 (Version None)
Quarter: 2006Q2

REPORT INFORMATION
  Report Type: 
  Country: None (occurrence: None)
  Receive Date: 20060404
  Receipt Date: 20060404
  Transmission Date: 20061013
  Serious: No
  Sender: FDA-Public Use
  Company Number: None

PATIENT
  Sex: Female
  Weight: 63.9572 kg

DRUGS (1)
  1. ACTIVELLA [Suspect]
     Indication: MENOPAUSE
     Dosage: 1.5 MG 1 A DAY
     Dates: start: 20060201, end: 20060228

REACTIONS (1)
  - BREAST SWELLING [None]
